FAERS Safety Report 11616387 (Version 3)
Quarter: 2016Q2

REPORT INFORMATION
  Report Type: Report from Study
  Country: JP (occurrence: JP)
  Receive Date: 20151009
  Receipt Date: 20160412
  Transmission Date: 20160815
  Serious: Yes (Death, Other)
  Sender: FDA-Public Use
  Company Number: JP-PFIZER INC-2015310876

PATIENT
  Age: 67 Year
  Sex: Female
  Weight: 61.3 kg

DRUGS (7)
  1. TIGECYCLINE. [Suspect]
     Active Substance: TIGECYCLINE
     Indication: PERITONEAL ABSCESS
     Dosage: 100 MG, DAILY
     Route: 042
     Dates: start: 20140924, end: 20140924
  2. TIGECYCLINE. [Suspect]
     Active Substance: TIGECYCLINE
     Dosage: 50 MG, 2X/DAY
     Route: 042
     Dates: start: 20140925
  3. CRAVIT [Concomitant]
     Active Substance: LEVOFLOXACIN
     Dosage: UNK
     Dates: start: 20140924
  4. KCL [Concomitant]
     Active Substance: POTASSIUM CHLORIDE
     Dosage: UNK
     Dates: start: 20140927
  5. ZOSYN [Concomitant]
     Active Substance: PIPERACILLIN SODIUM\TAZOBACTAM SODIUM
     Dosage: UNK
     Dates: start: 20140924
  6. PRODIF [Concomitant]
     Active Substance: FOSFLUCONAZOLE
     Dosage: UNK
     Dates: start: 20140924
  7. MAXIPIME [Concomitant]
     Active Substance: CEFEPIME HYDROCHLORIDE
     Dosage: UNK
     Dates: start: 20141007

REACTIONS (2)
  - Condition aggravated [Fatal]
  - Sepsis [Fatal]

NARRATIVE: CASE EVENT DATE: 20141014
